FAERS Safety Report 13810901 (Version 1)
Quarter: 2017Q3

REPORT INFORMATION
  Report Type: Spontaneous
  Country: US (occurrence: US)
  Receive Date: 20170728
  Receipt Date: 20170728
  Transmission Date: 20171127
  Serious: No
  Sender: FDA-Public Use
  Company Number: US-ROCHE-1231367

PATIENT
  Sex: Female

DRUGS (4)
  1. BONIVA [Suspect]
     Active Substance: IBANDRONATE SODIUM
     Indication: PRODUCT USED FOR UNKNOWN INDICATION
     Route: 065
  2. DETROL LA [Concomitant]
     Active Substance: TOLTERODINE TARTRATE
     Route: 065
  3. DETROL [Concomitant]
     Active Substance: TOLTERODINE TARTRATE
     Route: 065
  4. DETROL [Concomitant]
     Active Substance: TOLTERODINE TARTRATE
     Route: 065

REACTIONS (5)
  - Drug eruption [Unknown]
  - Oropharyngeal pain [Unknown]
  - Musculoskeletal chest pain [Unknown]
  - Chest pain [Unknown]
  - Abdominal pain upper [Unknown]
